FAERS Safety Report 17368559 (Version 6)
Quarter: 2020Q2

REPORT INFORMATION
  Report Type: Report from Study
  Country: US (occurrence: US)
  Receive Date: 20200204
  Receipt Date: 20200604
  Transmission Date: 20200713
  Serious: Yes (Hospitalization, Other)
  Sender: FDA-Public Use
  Company Number: US-PFIZER INC-2019548779

PATIENT
  Age: 80 Year
  Sex: Female

DRUGS (7)
  1. TYLENOL [Concomitant]
     Active Substance: ACETAMINOPHEN
     Indication: BACK PAIN
     Dosage: UNK
  2. IBRANCE [Suspect]
     Active Substance: PALBOCICLIB
     Indication: BREAST CANCER FEMALE
     Dosage: 125 MG, CYCLIC (DAY 1-21 OF 28 DAY CYCLE)
     Route: 048
     Dates: start: 20191215
  3. IBRANCE [Suspect]
     Active Substance: PALBOCICLIB
     Dosage: 100 MG, CYCLIC (DAILY, 1-21 OF 28 DAY CYCLE)
     Route: 048
     Dates: start: 202001
  4. IBRANCE [Suspect]
     Active Substance: PALBOCICLIB
     Dosage: 100MG DAILY ON DAYS 1 THROUGH 21 OF 28 DAY CYCLE
     Route: 048
     Dates: start: 20200303
  5. IBUPROFEN. [Concomitant]
     Active Substance: IBUPROFEN
     Indication: BACK PAIN
     Dosage: UNK
  6. TRAMADOL. [Concomitant]
     Active Substance: TRAMADOL
     Indication: BACK PAIN
     Dosage: UNK
  7. IBRANCE [Suspect]
     Active Substance: PALBOCICLIB
     Dosage: 100 MG, CYCLIC (QD (ONCE A DAY), 21 DAYS ON, 7 OFF)
     Route: 048
     Dates: start: 20200112

REACTIONS (21)
  - Oesophagitis [Unknown]
  - Constipation [Unknown]
  - Oesophageal disorder [Unknown]
  - Weight decreased [Not Recovered/Not Resolved]
  - Dysphagia [Unknown]
  - Burn oesophageal [Recovering/Resolving]
  - Gastritis [Unknown]
  - Flatulence [Unknown]
  - Red blood cell count decreased [Unknown]
  - Nausea [Unknown]
  - Memory impairment [Unknown]
  - Vomiting [Not Recovered/Not Resolved]
  - Oesophageal pain [Recovering/Resolving]
  - White blood cell count decreased [Not Recovered/Not Resolved]
  - Decreased appetite [Recovering/Resolving]
  - Asthenia [Recovered/Resolved]
  - Abdominal discomfort [Not Recovered/Not Resolved]
  - Chest pain [Recovering/Resolving]
  - Renal impairment [Unknown]
  - Diarrhoea [Unknown]
  - Abdominal pain [Not Recovered/Not Resolved]

NARRATIVE: CASE EVENT DATE: 2019
